FAERS Safety Report 25104538 (Version 1)
Quarter: 2025Q1

REPORT INFORMATION
  Report Type: Other
  Country: US (occurrence: US)
  Receive Date: 20250321
  Receipt Date: 20250321
  Transmission Date: 20250408
  Serious: Yes (Hospitalization, Other)
  Sender: EMD SERONO INC
  Company Number: US-Merck Healthcare KGaA-2025012896

PATIENT
  Age: 58 Year
  Sex: Female

DRUGS (5)
  1. METFORMIN [Suspect]
     Active Substance: METFORMIN HYDROCHLORIDE
     Indication: Type 2 diabetes mellitus
  2. INSULIN GLARGINE [Suspect]
     Active Substance: INSULIN GLARGINE
     Indication: Product used for unknown indication
  3. GABAPENTIN [Concomitant]
     Active Substance: GABAPENTIN
     Indication: Product used for unknown indication
  4. PAROXETINE [Concomitant]
     Active Substance: PAROXETINE
     Indication: Product used for unknown indication
  5. QUETIAPINE [Concomitant]
     Active Substance: QUETIAPINE
     Indication: Product used for unknown indication

REACTIONS (7)
  - Toxic encephalopathy [Recovered/Resolved]
  - Toxicity to various agents [Unknown]
  - Hypoglycaemia [Unknown]
  - Azotaemia [Unknown]
  - Lactic acidosis [Recovered/Resolved]
  - Metabolic acidosis [Recovered/Resolved]
  - Contraindicated product administered [Unknown]
